FAERS Safety Report 6129053-X (Version None)
Quarter: 2009Q1

REPORT INFORMATION
  Report Type: 
  Country: None (occurrence: None)
  Receive Date: 20090324
  Receipt Date: 20090312
  Transmission Date: 20090719
  Serious: Yes (Hospitalization)
  Sender: FDA-Public Use
  Company Number: US-JNJFOC-20090303627

PATIENT
  Sex: Female
  Weight: 61.24 kg

DRUGS (2)
  1. TOPAMAX [Suspect]
     Indication: MIGRAINE PROPHYLAXIS
     Route: 048
  2. TETRACYCLINE [Concomitant]
     Indication: ROSACEA

REACTIONS (3)
  - FATIGUE [None]
  - HEART RATE INCREASED [None]
  - MOOD ALTERED [None]
